FAERS Safety Report 7227847-0 (Version None)
Quarter: 2011Q1

REPORT INFORMATION
  Report Type: 
  Country: None (occurrence: None)
  Receive Date: 20110114
  Receipt Date: 20101221
  Transmission Date: 20110831
  Serious: No
  Sender: FDA-Public Use
  Company Number: US-JNJFOC-20101207808

PATIENT
  Age: 40 Year
  Sex: Female
  Weight: 95.26 kg

DRUGS (4)
  1. INVEGA [Suspect]
     Indication: PRODUCT USED FOR UNKNOWN INDICATION
     Route: 048
  2. EFFEXOR XR [Suspect]
     Indication: BIPOLAR DISORDER
  3. EFFEXOR XR [Suspect]
     Indication: SCHIZOPHRENIA
  4. INVEGA [Suspect]
     Route: 048

REACTIONS (2)
  - IRRITABILITY [None]
  - ANGER [None]
